FAERS Safety Report 24236132 (Version 1)
Quarter: 2024Q3

REPORT INFORMATION
  Report Type: Report from Study
  Country: SA (occurrence: SA)
  Receive Date: 20240822
  Receipt Date: 20240822
  Transmission Date: 20241017
  Serious: Yes (Other)
  Sender: SANDOZ
  Company Number: SA-SANDOZ-SDZ2024SA073147

PATIENT
  Sex: Male

DRUGS (1)
  1. HYRIMOZ [Suspect]
     Active Substance: ADALIMUMAB-ADAZ
     Indication: Psoriasis
     Dosage: 40 MG, Q2W
     Route: 058
     Dates: start: 20231214

REACTIONS (2)
  - Acne [Recovering/Resolving]
  - Arthropod sting [Unknown]

NARRATIVE: CASE EVENT DATE: 20240101
